FAERS Safety Report 6860574-8 (Version None)
Quarter: 2010Q3

REPORT INFORMATION
  Report Type: 
  Country: None (occurrence: None)
  Receive Date: 20100720
  Receipt Date: 20100709
  Transmission Date: 20110219
  Serious: Yes (Hospitalization)
  Sender: FDA-Public Use
  Company Number: B0665917A

PATIENT
  Age: 34 Year
  Sex: Male

DRUGS (4)
  1. AUGMENTIN '125' [Suspect]
     Indication: PNEUMONIA
     Dosage: 2G PER DAY
     Dates: start: 20100628, end: 20100701
  2. AZITHROMYCIN [Concomitant]
     Route: 042
     Dates: start: 20100628, end: 20100702
  3. CEFTRIAXONE [Concomitant]
     Route: 042
     Dates: start: 20100625, end: 20100627
  4. OFLOXACIN [Concomitant]
     Route: 042
     Dates: start: 20100625, end: 20100627

REACTIONS (2)
  - BRONCHOSPASM [None]
  - DYSPNOEA [None]
